FAERS Safety Report 5915533-6 (Version None)
Quarter: 2008Q4

REPORT INFORMATION
  Report Type: 
  Country: None (occurrence: None)
  Receive Date: 20081010
  Receipt Date: 20080708
  Transmission Date: 20090506
  Serious: No
  Sender: FDA-Public Use
  Company Number: A0736486A

PATIENT
  Age: 60 Year
  Sex: Female

DRUGS (5)
  1. TYKERB [Suspect]
     Indication: BREAST CANCER
     Dosage: 5TAB PER DAY
     Route: 048
     Dates: start: 20080705
  2. NAVELBINE [Suspect]
     Indication: BREAST CANCER
     Route: 065
     Dates: start: 20080601
  3. SYNTHROID [Concomitant]
  4. REMERON [Concomitant]
  5. TYLENOL (CAPLET) [Concomitant]

REACTIONS (5)
  - CONSTIPATION [None]
  - FATIGUE [None]
  - INSOMNIA [None]
  - TACHYCARDIA [None]
  - THIRST [None]
